FAERS Safety Report 6699129-7 (Version None)
Quarter: 2010Q2

REPORT INFORMATION
  Report Type: 
  Country: None (occurrence: None)
  Receive Date: 20100427
  Receipt Date: 20100422
  Transmission Date: 20101027
  Serious: Yes (Death)
  Sender: FDA-Public Use
  Company Number: JP-JNJFOC-20091100227

PATIENT
  Sex: Female
  Weight: 46 kg

DRUGS (16)
  1. DOXORUBICIN HCL [Suspect]
     Indication: OVARIAN CANCER RECURRENT
     Dosage: CYCLE 1
     Route: 042
  2. SODIUM CHLORIDE [Concomitant]
     Route: 042
  3. MULTIVITAMIN ADDITIVE [Concomitant]
     Route: 042
  4. MEDLENIK [Concomitant]
     Route: 042
  5. SANDOSTATIN [Concomitant]
     Indication: INTESTINAL OBSTRUCTION
     Route: 042
  6. GASCON [Concomitant]
     Indication: INTESTINAL OBSTRUCTION
     Route: 048
  7. NOVOLIN R [Concomitant]
     Indication: DIABETES MELLITUS
     Route: 042
  8. VITAMIN C [Concomitant]
     Indication: STOMATITIS
     Route: 042
  9. GRANISETRON [Concomitant]
     Indication: PROPHYLAXIS
     Route: 042
  10. DECADRON [Concomitant]
     Indication: PROPHYLAXIS
     Route: 042
  11. DUROTEP [Concomitant]
     Route: 062
  12. FENTANYL [Concomitant]
     Route: 042
  13. KENTAN [Concomitant]
     Indication: PROPHYLAXIS
     Route: 048
  14. LANSOPRAZOLE [Concomitant]
     Indication: PROPHYLAXIS
     Route: 048
  15. MAGMITT [Concomitant]
     Route: 048
  16. CLAFORAN [Concomitant]
     Route: 042

REACTIONS (1)
  - INTERSTITIAL LUNG DISEASE [None]
